FAERS Safety Report 8206072-0 (Version None)
Quarter: 2012Q1

REPORT INFORMATION
  Report Type: 
  Country: None (occurrence: None)
  Receive Date: 20120313
  Receipt Date: 20120229
  Transmission Date: 20120608
  Serious: Yes (Death, Hospitalization)
  Sender: FDA-Public Use
  Company Number: DE-CELGENEUS-062-50794-10071579

PATIENT
  Age: 69 Year
  Sex: Male
  Weight: 71 kg

DRUGS (10)
  1. VIDAZA [Suspect]
     Dosage: 130 MILLIGRAM
     Route: 041
     Dates: start: 20100716, end: 20100719
  2. RAMIPRIL [Concomitant]
     Route: 065
  3. TORSEMIDE [Concomitant]
     Route: 065
  4. CEFTRIAXON [Concomitant]
     Dosage: 2 MILLIGRAM
     Route: 041
     Dates: start: 20100716
  5. ONDANSETRON [Concomitant]
     Route: 042
     Dates: start: 20100716, end: 20100720
  6. XIPAMID [Concomitant]
     Route: 065
  7. MOLSIDOMIN [Concomitant]
     Route: 065
  8. CIPROFLOXACIN [Concomitant]
     Indication: INFECTION PROPHYLAXIS
     Dosage: 500 MILLIGRAM
     Route: 048
     Dates: start: 20100716
  9. PLATELETS [Concomitant]
     Route: 065
     Dates: start: 20100715, end: 20100715
  10. DIPYRONE TAB [Concomitant]
     Dosage: 300 MG
     Route: 065
     Dates: start: 20100716, end: 20100717

REACTIONS (2)
  - ACUTE MYOCARDIAL INFARCTION [None]
  - DEATH [None]
